FAERS Safety Report 5549665-1 (Version None)
Quarter: 2007Q4

REPORT INFORMATION
  Report Type: 
  Country: None (occurrence: None)
  Receive Date: 20071212
  Receipt Date: 20071205
  Transmission Date: 20080405
  Serious: Yes (Other)
  Sender: FDA-Public Use
  Company Number: AU-AVENTIS-200718390GDDC

PATIENT
  Age: 36 Year
  Sex: Female

DRUGS (2)
  1. TAXOTERE [Suspect]
     Indication: BREAST CANCER
     Route: 042
     Dates: start: 20070327
  2. TAXOTERE [Suspect]
     Route: 042
     Dates: start: 20070417, end: 20070508

REACTIONS (6)
  - CAESAREAN SECTION [None]
  - DRUG EXPOSURE DURING PREGNANCY [None]
  - INTENTIONAL DRUG MISUSE [None]
  - LABILE BLOOD PRESSURE [None]
  - POSTPARTUM HAEMORRHAGE [None]
  - PRE-ECLAMPSIA [None]
